FAERS Safety Report 6541994-8 (Version None)
Quarter: 2010Q1

REPORT INFORMATION
  Report Type: 
  Country: None (occurrence: None)
  Receive Date: 20100119
  Receipt Date: 20100112
  Transmission Date: 20100710
  Serious: Yes (Death, Hospitalization)
  Sender: FDA-Public Use
  Company Number: JP-ROCHE-664970

PATIENT
  Age: 62 Year
  Sex: Male

DRUGS (9)
  1. AVASTIN [Suspect]
     Indication: COLON CANCER
     Route: 041
  2. IRINOTECAN HCL [Suspect]
     Indication: COLON CANCER
     Route: 041
  3. 5-FU [Suspect]
     Indication: COLON CANCER
     Dosage: ROUTE: INTRAVENOUS BOLUS
     Route: 042
  4. 5-FU [Suspect]
     Dosage: ROUTE: INTRAVENOUS DRIP
     Route: 042
  5. 5-FU [Suspect]
     Dosage: ROUTE: INTRAVENOUS BOLUS
     Route: 042
  6. 5-FU [Suspect]
     Dosage: ROUTE: INTRAVENOUS DRIP
     Route: 042
  7. LEVOFOLINATE [Suspect]
     Indication: COLON CANCER
     Route: 041
  8. LEVOFOLINATE [Suspect]
     Route: 041
  9. ELPLAT [Concomitant]
     Route: 041

REACTIONS (5)
  - ANAEMIA HAEMOLYTIC AUTOIMMUNE [None]
  - DISSEMINATED INTRAVASCULAR COAGULATION [None]
  - EPISTAXIS [None]
  - MELAENA [None]
  - MULTI-ORGAN FAILURE [None]
